FAERS Safety Report 7981885-9 (Version None)
Quarter: 2011Q4

REPORT INFORMATION
  Report Type: 
  Country: None (occurrence: None)
  Receive Date: 20111213
  Receipt Date: 20111129
  Transmission Date: 20120403
  Serious: Yes (Hospitalization)
  Sender: FDA-Public Use
  Company Number: 2011AP002895

PATIENT
  Age: 49 Year
  Sex: Male

DRUGS (4)
  1. LORAZEPAM [Concomitant]
  2. AMLODIPINE BESYLATE [Suspect]
     Indication: PRODUCT USED FOR UNKNOWN INDICATION
  3. FOSPHENYTOIN SODIUM [Suspect]
     Indication: STATUS EPILEPTICUS
     Dosage: IV
     Route: 042
  4. CARVEDILOL [Suspect]
     Indication: PRODUCT USED FOR UNKNOWN INDICATION

REACTIONS (9)
  - CARDIOTOXICITY [None]
  - CARDIOGENIC SHOCK [None]
  - STATUS EPILEPTICUS [None]
  - APNOEA [None]
  - BRADYCARDIA [None]
  - BLOOD GLUCOSE INCREASED [None]
  - NODAL RHYTHM [None]
  - BLOOD PRESSURE DECREASED [None]
  - EJECTION FRACTION DECREASED [None]
